FAERS Safety Report 6153294-9 (Version None)
Quarter: 2009Q2

REPORT INFORMATION
  Report Type: 
  Country: None (occurrence: None)
  Receive Date: 20090409
  Receipt Date: 20090406
  Transmission Date: 20091009
  Serious: Yes (Hospitalization)
  Sender: FDA-Public Use
  Company Number: THQ2009A02039

PATIENT
  Age: 71 Month
  Sex: Male

DRUGS (1)
  1. ACTOS [Suspect]
     Indication: DIABETES MELLITUS
     Dosage: 30 MG PER ORAL
     Route: 048
     Dates: start: 20080201, end: 20090210

REACTIONS (4)
  - ASCITES [None]
  - CARDIAC FAILURE [None]
  - OEDEMA [None]
  - PLEURAL EFFUSION [None]
